FAERS Safety Report 21640055 (Version 6)
Quarter: 2024Q2

REPORT INFORMATION
  Report Type: Report from Study
  Country: US (occurrence: US)
  Receive Date: 20221124
  Receipt Date: 20240416
  Transmission Date: 20240716
  Serious: Yes (Disabling, Other)
  Sender: FDA-Public Use
  Company Number: US-HORIZON THERAPEUTICS-HZN-2022-001424

PATIENT

DRUGS (23)
  1. TEPEZZA [Suspect]
     Active Substance: TEPROTUMUMAB-TRBW
     Indication: Endocrine ophthalmopathy
     Dosage: 1100 MG, FIRST INFUSION
     Route: 042
     Dates: start: 20220217
  2. TEPEZZA [Suspect]
     Active Substance: TEPROTUMUMAB-TRBW
     Indication: Toxic goitre
     Dosage: 2200 MG, SECOND INFUSION, INFUSION LASTED 41MIN
     Route: 042
     Dates: start: 20220317, end: 20220317
  3. TEPEZZA [Suspect]
     Active Substance: TEPROTUMUMAB-TRBW
     Indication: Graves^ disease
     Dosage: 2200 MG, THIRD INFUSION
     Route: 042
     Dates: start: 20220408, end: 20220408
  4. TEPEZZA [Suspect]
     Active Substance: TEPROTUMUMAB-TRBW
     Dosage: 2200 MG FOURTH INFUSION
     Route: 042
     Dates: start: 20220429
  5. TEPEZZA [Suspect]
     Active Substance: TEPROTUMUMAB-TRBW
     Dosage: 2150 MG FIFTH INFUSION
     Route: 042
     Dates: start: 20220520
  6. TEPEZZA [Suspect]
     Active Substance: TEPROTUMUMAB-TRBW
     Dosage: 2200 MG SIXTH INFUSION
     Route: 042
     Dates: start: 20220609
  7. TEPEZZA [Suspect]
     Active Substance: TEPROTUMUMAB-TRBW
     Dosage: 2200 MG SEVENTH INFUSION
     Route: 042
     Dates: start: 20230630
  8. TEPEZZA [Suspect]
     Active Substance: TEPROTUMUMAB-TRBW
     Dosage: 2080 MG LAST INFUSION
     Route: 042
     Dates: start: 20220722
  9. LEVOTHYROXINE [Concomitant]
     Active Substance: LEVOTHYROXINE\LEVOTHYROXINE SODIUM
     Indication: Product used for unknown indication
     Dosage: 200 UG, EVERY DAY
     Route: 048
     Dates: start: 20220325
  10. LEVOTHYROXINE [Concomitant]
     Active Substance: LEVOTHYROXINE\LEVOTHYROXINE SODIUM
     Dosage: 50 UG, QD
     Route: 048
     Dates: start: 20220325
  11. ATORVASTATIN [Concomitant]
     Active Substance: ATORVASTATIN
     Indication: Product used for unknown indication
     Dosage: 10 MG, QD
     Route: 048
     Dates: start: 20211109
  12. BENADRYL [Concomitant]
     Active Substance: DIPHENHYDRAMINE HYDROCHLORIDE
     Indication: Product used for unknown indication
     Dosage: 25 MG
     Route: 048
     Dates: start: 20220408
  13. SODIUM CHLORIDE [Concomitant]
     Active Substance: SODIUM CHLORIDE
     Indication: Product used for unknown indication
     Route: 065
  14. OFLOXACIN [Concomitant]
     Active Substance: OFLOXACIN
     Dosage: UNK UNK, BID
  15. NORCO [Concomitant]
     Active Substance: ACETAMINOPHEN\HYDROCODONE BITARTRATE
     Indication: Pain
     Dosage: UNK (10-325 MG) EVERY FOUR HOURS
     Route: 048
  16. AUGMENTIN [Concomitant]
     Active Substance: AMOXICILLIN\CLAVULANATE POTASSIUM
     Dosage: UNK (875-125 MG) ONE TABLET EVERY 12 HOURS
     Route: 048
  17. HYDROCODONE BITARTRATE AND ACETAMINOPHEN [Concomitant]
     Active Substance: ACETAMINOPHEN\HYDROCODONE BITARTRATE
     Indication: Pain
     Dosage: UNK (7.5 - 325 MG) ONE TABLET EVERY 4 HOURS
     Route: 048
  18. SYNTHROID [Concomitant]
     Active Substance: LEVOTHYROXINE SODIUM
     Dosage: 200 UG, QD
     Route: 048
     Dates: start: 20211109
  19. NAPROXEN [Concomitant]
     Active Substance: NAPROXEN
     Indication: Pain
     Dosage: 500 MG, BID
     Route: 048
     Dates: start: 20220614
  20. HYDROXYZINE [Concomitant]
     Active Substance: HYDROXYZINE HYDROCHLORIDE
     Indication: Nausea
     Dosage: 25 MG, TID
     Route: 048
     Dates: start: 20220614
  21. HYDROXYZINE [Concomitant]
     Active Substance: HYDROXYZINE HYDROCHLORIDE
     Indication: Pain
  22. HYDROXYZINE [Concomitant]
     Active Substance: HYDROXYZINE HYDROCHLORIDE
     Indication: Sleep disorder
  23. TORADOL [Concomitant]
     Active Substance: KETOROLAC TROMETHAMINE
     Dosage: 15 MG

REACTIONS (36)
  - Physical disability [Unknown]
  - Disability [Unknown]
  - Deafness [Unknown]
  - Palpitations [Unknown]
  - Pain in extremity [Unknown]
  - Illness [Unknown]
  - Condition aggravated [Unknown]
  - Anxiety [Unknown]
  - General physical health deterioration [Unknown]
  - Pain [Unknown]
  - Vomiting [Unknown]
  - Pruritus [Unknown]
  - Dizziness [Unknown]
  - Infusion related reaction [Unknown]
  - Facial paralysis [Unknown]
  - Infusion related reaction [Unknown]
  - Nausea [Unknown]
  - Tinnitus [Unknown]
  - Dry skin [Unknown]
  - Headache [Recovered/Resolved]
  - Diarrhoea [Unknown]
  - Nausea [Unknown]
  - Fatigue [Unknown]
  - Injury [Unknown]
  - Economic problem [Unknown]
  - Muscle spasms [Not Recovered/Not Resolved]
  - Dyslipidaemia [Unknown]
  - Urinary tract infection [Unknown]
  - Weight decreased [Unknown]
  - Back pain [Unknown]
  - Blood thyroid stimulating hormone decreased [Unknown]
  - COVID-19 [Unknown]
  - Eye pain [Unknown]
  - Eye disorder [Unknown]
  - Lacrimation increased [Unknown]
  - Inappropriate schedule of product administration [Unknown]

NARRATIVE: CASE EVENT DATE: 20220101
